FAERS Safety Report 18912047 (Version 2)
Quarter: 2021Q1

REPORT INFORMATION
  Report Type: Spontaneous
  Country: FR (occurrence: FR)
  Receive Date: 20210219
  Receipt Date: 20210310
  Transmission Date: 20210420
  Serious: Yes (Hospitalization, Other)
  Sender: FDA-Public Use
  Company Number: FR-ASTELLAS-2021US002756

PATIENT
  Sex: Female

DRUGS (4)
  1. XOSPATA [Suspect]
     Active Substance: GILTERITINIB
     Indication: ACUTE MYELOID LEUKAEMIA
     Route: 048
     Dates: start: 202101, end: 202101
  2. XOSPATA [Suspect]
     Active Substance: GILTERITINIB
     Route: 065
     Dates: start: 20210203
  3. XOSPATA [Suspect]
     Active Substance: GILTERITINIB
     Dosage: 1 DF, ONCE DAILY FOR A FEW DAYS
     Route: 065
  4. XOSPATA [Suspect]
     Active Substance: GILTERITINIB
     Dosage: 2 DF, ONCE DAILY FOR A FEW DAYS
     Route: 065

REACTIONS (15)
  - Cardiac failure [Unknown]
  - Inflammation [Unknown]
  - Amnesia [Recovered/Resolved]
  - Acute myeloid leukaemia [Unknown]
  - Infection [Recovered/Resolved]
  - Nervous system disorder [Recovered/Resolved]
  - Personality disorder [Recovered/Resolved]
  - Leukocytosis [Unknown]
  - Confusional state [Recovered/Resolved]
  - Urinary incontinence [Recovered/Resolved]
  - Skin plaque [Recovered/Resolved]
  - Pulmonary arterial hypertension [Unknown]
  - Aplasia [Recovering/Resolving]
  - Oral candidiasis [Unknown]
  - Pleural effusion [Unknown]

NARRATIVE: CASE EVENT DATE: 2021
